FAERS Safety Report 14454391 (Version 1)
Quarter: 2018Q1

REPORT INFORMATION
  Report Type: Spontaneous
  Country: US (occurrence: US)
  Receive Date: 20180128
  Receipt Date: 20180128
  Transmission Date: 20180509
  Serious: Yes (Hospitalization)
  Sender: FDA-Public Use
  Company Number: None

PATIENT
  Sex: Female
  Weight: 76.5 kg

DRUGS (1)
  1. GABAPENTIN. [Suspect]
     Active Substance: GABAPENTIN
     Indication: INSOMNIA
     Route: 048
     Dates: start: 20171001, end: 20171120

REACTIONS (7)
  - Blood glucose increased [None]
  - Transient ischaemic attack [None]
  - Dry mouth [None]
  - Memory impairment [None]
  - Dysarthria [None]
  - Bedridden [None]
  - Crying [None]

NARRATIVE: CASE EVENT DATE: 20171001
